FAERS Safety Report 12171171 (Version 1)
Quarter: 2016Q1

REPORT INFORMATION
  Report Type: Spontaneous
  Country: US (occurrence: None)
  Receive Date: 20160310
  Receipt Date: 20160310
  Transmission Date: 20160526
  Serious: No
  Sender: FDA-Public Use
  Company Number: None

PATIENT
  Age: 42 Year
  Sex: Female
  Weight: 0 kg

DRUGS (1)
  1. ORENCIA [Suspect]
     Active Substance: ABATACEPT
     Indication: RHEUMATOID ARTHRITIS
     Dosage: SUBCETANEOUS 057 125MG/ML 125MG WEEKLY
     Route: 058

REACTIONS (3)
  - Injection site erythema [None]
  - Injection site reaction [None]
  - Injection site mass [None]

NARRATIVE: CASE EVENT DATE: 20160309
